FAERS Safety Report 9205062 (Version 1)
Quarter: 2013Q2

REPORT INFORMATION
  Report Type: Spontaneous
  Country: US (occurrence: None)
  Receive Date: 20130401
  Receipt Date: 20130401
  Transmission Date: 20140414
  Serious: Yes (Other)
  Sender: FDA-Public Use
  Company Number: None

PATIENT
  Age: 21 Year
  Sex: Male
  Weight: 65.77 kg

DRUGS (1)
  1. ELMIRON [Suspect]
     Indication: CYSTITIS INTERSTITIAL
     Route: 048
     Dates: start: 20101001, end: 20110101

REACTIONS (6)
  - Mouth ulceration [None]
  - Eating disorder [None]
  - Gingival inflammation [None]
  - Glossodynia [None]
  - Pain [None]
  - Purulent discharge [None]
